FAERS Safety Report 23268297 (Version 1)
Quarter: 2023Q4

REPORT INFORMATION
  Report Type: Report from Study
  Country: US (occurrence: US)
  Receive Date: 20231206
  Receipt Date: 20231206
  Transmission Date: 20240109
  Serious: Yes (Death, Other)
  Sender: FDA-Public Use
  Company Number: US-ABBVIE-5526729

PATIENT
  Sex: Male

DRUGS (1)
  1. CREON [Suspect]
     Active Substance: PANCRELIPASE AMYLASE\PANCRELIPASE LIPASE\PANCRELIPASE PROTEASE
     Indication: Digestive enzyme abnormal
     Dosage: THREE CAPSULES WITH EACH MEAL AND ONE CAPSULE WITH EACH SNACK?FORM STRENGTH: 12000 UNIT
     Route: 048
     Dates: start: 2009, end: 202310

REACTIONS (2)
  - Hepatic cirrhosis [Fatal]
  - Biliary obstruction [Fatal]

NARRATIVE: CASE EVENT DATE: 20230101
